FAERS Safety Report 7501846-3 (Version None)
Quarter: 2011Q2

REPORT INFORMATION
  Report Type: 
  Country: None (occurrence: None)
  Receive Date: 20110525
  Receipt Date: 20110506
  Transmission Date: 20111010
  Serious: Yes (Life-Threatening, Hospitalization)
  Sender: FDA-Public Use
  Company Number: US-BAYER-2011-032036

PATIENT
  Sex: Female
  Weight: 68.027 kg

DRUGS (3)
  1. YAZ [Suspect]
     Indication: CONTRACEPTION
     Dosage: UNK
     Dates: start: 20080401, end: 20081201
  2. FLAGYL [Concomitant]
     Indication: VAGINAL INFECTION
     Dosage: 500 MG, BID
     Route: 048
     Dates: start: 20080409
  3. YASMIN [Suspect]
     Indication: CONTRACEPTION
     Dosage: UNK
     Dates: start: 20080401, end: 20081201

REACTIONS (2)
  - THROMBOSIS [None]
  - INJURY [None]
